FAERS Safety Report 24779962 (Version 1)
Quarter: 2024Q4

REPORT INFORMATION
  Report Type: Spontaneous
  Country: ES (occurrence: ES)
  Receive Date: 20241226
  Receipt Date: 20241226
  Transmission Date: 20250115
  Serious: Yes (Other)
  Sender: NOVO NORDISK
  Company Number: None

PATIENT
  Age: 50 Year
  Sex: Male

DRUGS (5)
  1. VAGIFEM [Suspect]
     Active Substance: ESTRADIOL
     Indication: Pelvic discomfort
     Dosage: 10 ?G, QD
     Route: 048
     Dates: start: 20240927, end: 20241106
  2. ZONEGRAN [Concomitant]
     Active Substance: ZONISAMIDE
     Dosage: 100 MG, QD
     Route: 048
     Dates: start: 20240503
  3. ALPRAZOLAM [Concomitant]
     Active Substance: ALPRAZOLAM
     Dosage: 0.5 MG, BID (AS NECESSARY)
     Route: 048
     Dates: start: 20240301
  4. ESCITALOPRAM OXALATE [Concomitant]
     Active Substance: ESCITALOPRAM OXALATE
     Dosage: 10 MG, QD
     Route: 048
     Dates: start: 20230829
  5. NALOXONE HYDROCHLORIDE\OXYCODONE HYDROCHLORIDE [Concomitant]
     Active Substance: NALOXONE HYDROCHLORIDE\OXYCODONE HYDROCHLORIDE
     Dosage: 1 {DF} (DOSAGE FORM)  BID
     Route: 048
     Dates: start: 20220509

REACTIONS (5)
  - Migraine [Recovered/Resolved]
  - Breast mass [Not Recovered/Not Resolved]
  - Pruritus [Recovered/Resolved]
  - Nausea [Recovered/Resolved]
  - Product use in unapproved indication [Recovered/Resolved]

NARRATIVE: CASE EVENT DATE: 20240927
